FAERS Safety Report 25973894 (Version 1)
Quarter: 2025Q4

REPORT INFORMATION
  Report Type: Spontaneous
  Country: US (occurrence: US)
  Receive Date: 20251029
  Receipt Date: 20251029
  Transmission Date: 20260118
  Serious: No
  Sender: PANACEA BIOTEC PHARMA LIMITED
  Company Number: US-PBT-010936

PATIENT
  Sex: Female

DRUGS (1)
  1. RIZATRIPTAN [Suspect]
     Active Substance: RIZATRIPTAN
     Indication: Migraine
     Route: 065

REACTIONS (2)
  - Product with quality issue administered [Unknown]
  - Product taste abnormal [Unknown]
